FAERS Safety Report 8821584 (Version 1)
Quarter: 2012Q4

REPORT INFORMATION
  Report Type: Report from Study
  Country: US (occurrence: US)
  Receive Date: 20121002
  Receipt Date: 20121002
  Transmission Date: 20130627
  Serious: No
  Sender: FDA-Public Use
  Company Number: US-VERTEX PHARMACEUTICAL INC.-2012-020751

PATIENT
  Age: 58 Year
  Sex: Male

DRUGS (6)
  1. VX-950 [Suspect]
     Indication: HEPATITIS C
     Dosage: 750 mg, tid
     Route: 048
  2. PEGASYS PROCLICK [Concomitant]
     Indication: HEPATITIS C
  3. RIBAPAK PAK [Concomitant]
     Indication: HEPATITIS C
     Dosage: 1200 UNK, qd
  4. VERAPAMIL [Concomitant]
     Dosage: 120 mg, UNK
  5. LISINOPRIL [Concomitant]
     Dosage: 5 mg, UNK
  6. ADVIL                              /00044201/ [Concomitant]
     Dosage: 200 mg, UNK

REACTIONS (4)
  - White blood cell count decreased [Unknown]
  - Presyncope [Unknown]
  - Fatigue [Unknown]
  - Platelet count decreased [Unknown]
